FAERS Safety Report 15321798 (Version 1)
Quarter: 2018Q3

REPORT INFORMATION
  Report Type: Spontaneous
  Country: BR (occurrence: BR)
  Receive Date: 20180827
  Receipt Date: 20180827
  Transmission Date: 20181010
  Serious: Yes (Hospitalization)
  Sender: FDA-Public Use
  Company Number: BR-MYLANLABS-2018M1063068

PATIENT
  Sex: Female

DRUGS (8)
  1. GABAPENTIN. [Concomitant]
     Active Substance: GABAPENTIN
     Indication: BONE PAIN
     Dosage: (300 MG,1 IN 1 D)
     Route: 048
     Dates: start: 2016, end: 2017
  2. TESTOSTERONE. [Suspect]
     Active Substance: TESTOSTERONE
     Indication: LOSS OF LIBIDO
     Dosage: 1 SACHET DAILY (25 MG,1 IN 1 D)
     Route: 061
     Dates: start: 2018, end: 2018
  3. GABAPENTIN. [Concomitant]
     Active Substance: GABAPENTIN
     Dosage: 300 MG,1 IN 1 D
     Route: 048
     Dates: start: 2018
  4. ESCITALOPRAM OXALATE. [Concomitant]
     Active Substance: ESCITALOPRAM OXALATE
     Indication: ANXIETY
     Dosage: 1 TABLET DAILY (10 MG,1 IN 1 D)
     Route: 048
     Dates: start: 2017
  5. TESTOSTERONE. [Suspect]
     Active Substance: TESTOSTERONE
     Indication: MENOPAUSE
  6. ESCITALOPRAM OXALATE. [Concomitant]
     Active Substance: ESCITALOPRAM OXALATE
     Indication: DEPRESSION
  7. TESTOSTERONE. [Suspect]
     Active Substance: TESTOSTERONE
     Indication: HOT FLUSH
     Dosage: 1 SACHET DAILY (25 MG,1 IN 1 D)
     Route: 061
     Dates: start: 2016, end: 201802
  8. TESTOSTERONE. [Suspect]
     Active Substance: TESTOSTERONE
     Indication: CHILLS

REACTIONS (4)
  - Neoplasm recurrence [Unknown]
  - Product availability issue [Unknown]
  - Withdrawal syndrome [Unknown]
  - Product use issue [Unknown]

NARRATIVE: CASE EVENT DATE: 2016
